FAERS Safety Report 9727770 (Version 2)
Quarter: 2013Q4

REPORT INFORMATION
  Report Type: Spontaneous
  Country: US (occurrence: US)
  Receive Date: 20131203
  Receipt Date: 20131203
  Transmission Date: 20140711
  Serious: No
  Sender: FDA-Public Use
  Company Number: US-ENDO PHARMACEUTICALS INC.-AMIT20130021

PATIENT
  Age: 58 Year
  Sex: Female

DRUGS (3)
  1. AMITRIPTYLINE [Suspect]
     Indication: INSOMNIA
     Route: 048
     Dates: start: 2003
  2. DIAZEPAM [Concomitant]
     Indication: ANXIETY
     Dosage: UNK
     Route: 048
  3. OPIATES [Concomitant]
     Indication: PAIN
     Dosage: UNK

REACTIONS (1)
  - Drug ineffective [Not Recovered/Not Resolved]
